FAERS Safety Report 5123585-9 (Version None)
Quarter: 2006Q4

REPORT INFORMATION
  Report Type: 
  Country: None (occurrence: None)
  Receive Date: 20061010
  Receipt Date: 20060929
  Transmission Date: 20070319
  Serious: Yes (Other)
  Sender: FDA-Public Use
  Company Number: GB-BAYER-200611226BNE

PATIENT

DRUGS (1)
  1. AVELOX [Suspect]
     Route: 065

REACTIONS (1)
  - DEAFNESS [None]
